FAERS Safety Report 15497108 (Version 7)
Quarter: 2019Q1

REPORT INFORMATION
  Report Type: Report from Study
  Country: DE (occurrence: DE)
  Receive Date: 20181015
  Receipt Date: 20190125
  Transmission Date: 20190417
  Serious: Yes (Death, Hospitalization)
  Sender: FDA-Public Use
  Company Number: DE-ROCHE-2196125

PATIENT
  Age: 64 Year
  Sex: Male
  Weight: 77 kg

DRUGS (7)
  1. VEMURAFENIB. [Suspect]
     Active Substance: VEMURAFENIB
     Indication: MALIGNANT MELANOMA
     Route: 048
     Dates: start: 20180628, end: 20181011
  2. DEXAMETHASON [Concomitant]
     Active Substance: DEXAMETHASONE
     Route: 048
     Dates: end: 20180912
  3. ZOPICLON [Concomitant]
     Active Substance: ZOPICLONE
     Route: 048
     Dates: end: 20180801
  4. COBIMETINIB. [Suspect]
     Active Substance: COBIMETINIB
     Indication: MALIGNANT MELANOMA
     Route: 048
     Dates: start: 20180628, end: 20180920
  5. DEXAMETHASON [Concomitant]
     Active Substance: DEXAMETHASONE
     Route: 048
     Dates: start: 20180913
  6. PANTOPRAZOL [Concomitant]
     Active Substance: PANTOPRAZOLE SODIUM
     Route: 048
  7. DEXAMETHASON [Concomitant]
     Active Substance: DEXAMETHASONE
     Route: 048
     Dates: end: 20180912

REACTIONS (7)
  - Acute kidney injury [Fatal]
  - Multiple organ dysfunction syndrome [Fatal]
  - Septic shock [Fatal]
  - Left ventricular dysfunction [Recovering/Resolving]
  - Mitral valve incompetence [Recovering/Resolving]
  - Infection [Not Recovered/Not Resolved]
  - Mitral valve disease [Recovering/Resolving]

NARRATIVE: CASE EVENT DATE: 20180920
